FAERS Safety Report 9066434 (Version 2)
Quarter: 2013Q1

REPORT INFORMATION
  Report Type: Spontaneous
  Country: AT (occurrence: AT)
  Receive Date: 20130214
  Receipt Date: 20130307
  Transmission Date: 20140127
  Serious: Yes (Other)
  Sender: FDA-Public Use
  Company Number: AT-ROCHE-1187840

PATIENT
  Age: 44 Year
  Sex: Female

DRUGS (25)
  1. HERCEPTIN [Suspect]
     Indication: BREAST CANCER
     Route: 065
     Dates: start: 200512, end: 200602
  2. HERCEPTIN [Suspect]
     Route: 065
     Dates: start: 2004, end: 200612
  3. HERCEPTIN [Suspect]
     Route: 065
     Dates: start: 200802, end: 200803
  4. HERCEPTIN [Suspect]
     Route: 065
     Dates: start: 200804, end: 200811
  5. HERCEPTIN [Suspect]
     Route: 065
     Dates: start: 200811, end: 201003
  6. HERCEPTIN [Suspect]
     Route: 065
     Dates: start: 201004, end: 201010
  7. HERCEPTIN [Suspect]
     Route: 065
     Dates: start: 201101, end: 201106
  8. HERCEPTIN [Suspect]
     Route: 065
     Dates: start: 201109, end: 201111
  9. HERCEPTIN [Suspect]
     Route: 065
     Dates: start: 201111, end: 201203
  10. HERCEPTIN [Suspect]
     Route: 065
     Dates: start: 201203, end: 201205
  11. HERCEPTIN [Suspect]
     Route: 065
     Dates: start: 201206
  12. CAPECITABINE [Suspect]
     Indication: BREAST CANCER
     Route: 065
     Dates: start: 200804, end: 200811
  13. CAPECITABINE [Suspect]
     Route: 065
     Dates: start: 201004, end: 201010
  14. ABRAXANE [Concomitant]
     Route: 065
     Dates: start: 201206
  15. ERIBULIN [Concomitant]
     Route: 065
     Dates: start: 201111, end: 201203
  16. GOSERELIN [Concomitant]
     Route: 065
     Dates: start: 200802, end: 200803
  17. CAELYX [Concomitant]
     Route: 065
     Dates: start: 201101, end: 201106
  18. MTX [Concomitant]
     Route: 065
     Dates: start: 201109, end: 201111
  19. VINORELBINE [Concomitant]
     Route: 065
     Dates: start: 201011, end: 201101
  20. LETROZOLE [Concomitant]
     Route: 065
     Dates: start: 200802, end: 200803
  21. ENDOXAN [Concomitant]
     Route: 065
     Dates: start: 201109, end: 201111
  22. TAXOTERE [Concomitant]
  23. GEMCITABINE [Concomitant]
     Route: 065
     Dates: start: 200804, end: 200811
  24. LAPATINIB [Concomitant]
     Route: 065
     Dates: start: 201011, end: 201101
  25. TAXOTERE [Concomitant]
     Route: 065
     Dates: start: 200512, end: 200602

REACTIONS (1)
  - Disease progression [Unknown]
